FAERS Safety Report 6317103-7 (Version None)
Quarter: 2009Q3

REPORT INFORMATION
  Report Type: 
  Country: None (occurrence: None)
  Receive Date: 20090819
  Receipt Date: 20090810
  Transmission Date: 20100115
  Serious: Yes (Hospitalization)
  Sender: FDA-Public Use
  Company Number: PD107

PATIENT
  Age: 80 Year
  Sex: Female

DRUGS (1)
  1. LEVETIRACETAM [Suspect]
     Indication: PARTIAL SEIZURES
     Dosage: 2X 1000MG/DAY

REACTIONS (3)
  - CONFUSIONAL STATE [None]
  - DRUG TOXICITY [None]
  - MYOCLONUS [None]
